FAERS Safety Report 6548038-2 (Version None)
Quarter: 2010Q1

REPORT INFORMATION
  Report Type: 
  Country: None (occurrence: None)
  Receive Date: 20100124
  Receipt Date: 20091221
  Transmission Date: 20100710
  Serious: No
  Sender: FDA-Public Use
  Company Number: US-ALEXION-A200901114

PATIENT
  Sex: Male

DRUGS (2)
  1. SOLIRIS [Suspect]
     Dosage: UNK
  2. IRON [Concomitant]
     Dosage: INFUSIONS X 4 Q 2 WEEKS AFTER SOLIRIS INFUSION

REACTIONS (3)
  - BLOOD IRON DECREASED [None]
  - BLOOD TEST ABNORMAL [None]
  - CHROMATURIA [None]
